FAERS Safety Report 5042966-5 (Version None)
Quarter: 2006Q2

REPORT INFORMATION
  Report Type: 
  Country: None (occurrence: None)
  Receive Date: 20060627
  Receipt Date: 20060608
  Transmission Date: 20061013
  Serious: No
  Sender: FDA-Public Use
  Company Number: CA200606003538

PATIENT
  Sex: Female

DRUGS (7)
  1. ZYPREXA [Suspect]
     Indication: SCHIZOPHRENIA
     Dosage: 2/D, ORAL
     Route: 048
  2. FOLIC ACID [Concomitant]
  3. VENOFER [Concomitant]
  4. ARANESP [Concomitant]
  5. ALLOPURINOL [Concomitant]
  6. TUMS (CALCIUM CARBONATE) [Concomitant]
  7. LORAZEPAM [Concomitant]

REACTIONS (1)
  - PLATELET COUNT DECREASED [None]
